FAERS Safety Report 6786818-9 (Version None)
Quarter: 2010Q2

REPORT INFORMATION
  Report Type: 
  Country: None (occurrence: None)
  Receive Date: 20100623
  Receipt Date: 20100617
  Transmission Date: 20101027
  Serious: Yes (Death, Hospitalization, Other)
  Sender: FDA-Public Use
  Company Number: JP-BAYER-201012457BYL

PATIENT
  Age: 77 Year
  Sex: Male

DRUGS (11)
  1. NEXAVAR [Suspect]
     Indication: HEPATIC NEOPLASM MALIGNANT
     Dosage: TOTAL DAILY DOSE: 400 MG  UNIT DOSE: 200 MG
     Route: 048
     Dates: start: 20100510, end: 20100518
  2. HOKUNALIN:TAPE [Concomitant]
     Dosage: UNIT DOSE: 2 MG
     Route: 062
  3. CODEINE PHOSPHATE [Concomitant]
     Dosage: UNIT DOSE: 10 MG
     Route: 048
  4. LIVACT [Concomitant]
     Dosage: UNIT DOSE: 4.1 G
     Route: 048
  5. URSO 250 [Concomitant]
     Dosage: UNIT DOSE: 100 MG
     Route: 048
  6. OMEPRAL [Concomitant]
     Dosage: UNIT DOSE: 20 MG
     Route: 042
     Dates: start: 20100519, end: 20100521
  7. OMEPRAL [Concomitant]
     Dosage: UNIT DOSE: 20 MG
     Route: 048
  8. BIOFERMIN R [Concomitant]
     Dosage: UNIT DOSE: 1 G
     Route: 048
  9. JUZENTAIHOTO [Concomitant]
     Dosage: UNIT DOSE: 2.5 G
     Route: 048
  10. LASIX [Concomitant]
     Dosage: UNIT DOSE: 20 MG
     Route: 048
  11. ALDACTONE [Concomitant]
     Dosage: UNIT DOSE: 25 MG
     Route: 048

REACTIONS (6)
  - ALTERED STATE OF CONSCIOUSNESS [None]
  - BLOOD PRESSURE INCREASED [None]
  - DECREASED APPETITE [None]
  - HEPATIC ENCEPHALOPATHY [None]
  - HEPATIC FAILURE [None]
  - PNEUMONIA [None]
